FAERS Safety Report 10408566 (Version 3)
Quarter: 2015Q3

REPORT INFORMATION
  Report Type: Report from Study
  Country: BR (occurrence: BR)
  Receive Date: 20140826
  Receipt Date: 20150813
  Transmission Date: 20151125
  Serious: Yes (Hospitalization, Other)
  Sender: FDA-Public Use
  Company Number: PHHY2014BR105751

PATIENT
  Sex: Female
  Weight: 49.5 kg

DRUGS (10)
  1. URSACOL [Concomitant]
     Active Substance: URSODIOL
     Indication: PROPHYLAXIS
     Dosage: 3 DF, 1 CAPSULE IN THE MORNING AND 2 CAPSULE AT NIGHT
     Route: 048
  2. CIPROFLOXACIN. [Concomitant]
     Active Substance: CIPROFLOXACIN
     Indication: LUNG INFECTION
     Dosage: 1.5 DF, Q12H SPORADICALLY
     Route: 065
  3. AZITHROMYCIN [Concomitant]
     Active Substance: AZITHROMYCIN ANHYDROUS
     Indication: LUNG INFECTION
     Dosage: 1 DF, QW3 (MONDAY, WEDNESDAY, FRIDAY)
     Route: 048
  4. ZOTEON PODHALER [Suspect]
     Active Substance: TOBRAMYCIN
     Dosage: 4 DF, BID (4 IN THE MORNING AND 4 AT NIGHT)
     Route: 065
     Dates: start: 20140514
  5. ZOTEON PODHALER [Suspect]
     Active Substance: TOBRAMYCIN
     Dosage: UNK
     Route: 065
  6. PULMOZYME [Concomitant]
     Active Substance: DORNASE ALFA
     Indication: AIRWAY SECRETION CLEARANCE THERAPY
     Dosage: 1 DF, BID
     Route: 065
  7. CREON [Concomitant]
     Active Substance: PANCRELIPASE AMYLASE\PANCRELIPASE LIPASE\PANCRELIPASE PROTEASE
     Indication: PANCREATIC DISORDER
     Dosage: 7 DF, 4 CAPSULES IN BIG MEALS AND 3 CAPSULES IN SMALL MEALS
     Route: 048
  8. ZOTEON PODHALER [Suspect]
     Active Substance: TOBRAMYCIN
     Indication: CYSTIC FIBROSIS
     Dosage: UNK
     Route: 065
     Dates: start: 20140416, end: 20140513
  9. SUSTAGEN [Concomitant]
     Indication: NUTRITIONAL SUPPLEMENTATION
     Dosage: 4 DF, BID (4 SPOON IN A GLASS OF MILK)
     Route: 065
  10. LEVOFLOXACIN. [Concomitant]
     Active Substance: LEVOFLOXACIN
     Indication: LUNG INFECTION
     Dosage: 1.5 DF, Q12H SPORADICALLY
     Route: 048

REACTIONS (8)
  - Dysphonia [Recovered/Resolved]
  - Psychiatric symptom [Recovered/Resolved]
  - Oropharyngeal pain [Recovered/Resolved]
  - Cough [Recovering/Resolving]
  - Fatigue [Recovered/Resolved]
  - Dyspnoea [Recovered/Resolved]
  - Throat irritation [Recovering/Resolving]
  - Secretion discharge [Recovered/Resolved]

NARRATIVE: CASE EVENT DATE: 2014
